FAERS Safety Report 6175018-1 (Version None)
Quarter: 2009Q2

REPORT INFORMATION
  Report Type: 
  Country: None (occurrence: None)
  Receive Date: 20090430
  Receipt Date: 20090422
  Transmission Date: 20091009
  Serious: Yes (Hospitalization, Other)
  Sender: FDA-Public Use
  Company Number: PHHY2009DE04892

PATIENT
  Sex: Male
  Weight: 79 kg

DRUGS (2)
  1. EXJADE [Suspect]
     Indication: MYELODYSPLASTIC SYNDROME
     Dosage: 2000 MG DAILY
     Route: 048
     Dates: start: 20061201
  2. ASS ^CT-ARZNEIMITTEL^ [Concomitant]

REACTIONS (3)
  - CHOLESTEATOMA [None]
  - MASTOIDITIS [None]
  - SURGERY [None]
